FAERS Safety Report 15205948 (Version 6)
Quarter: 2020Q1

REPORT INFORMATION
  Report Type: Report from Study
  Country: CZ (occurrence: CZ)
  Receive Date: 20180727
  Receipt Date: 20200324
  Transmission Date: 20200409
  Serious: Yes (Other)
  Sender: FDA-Public Use
  Company Number: CZ-B.I. PHARMACEUTICALS,INC./RIDGEFIELD-2018-BI-037477

PATIENT
  Age: 71 Year
  Sex: Female

DRUGS (5)
  1. GILOTRIF [Suspect]
     Active Substance: AFATINIB
     Route: 048
     Dates: start: 20160927, end: 201708
  2. GILOTRIF [Suspect]
     Active Substance: AFATINIB
     Indication: NON-SMALL CELL LUNG CANCER
     Route: 048
     Dates: start: 20160607, end: 20160927
  3. DOXYHEXAL [DOXYCYCLINE] [Concomitant]
     Indication: PRODUCT USED FOR UNKNOWN INDICATION
     Route: 065
     Dates: start: 201609
  4. GILOTRIF [Suspect]
     Active Substance: AFATINIB
     Route: 048
     Dates: start: 201708, end: 20180306
  5. PEMETREXED. [Concomitant]
     Active Substance: PEMETREXED
     Indication: NON-SMALL CELL LUNG CANCER
     Route: 065
     Dates: start: 20180405

REACTIONS (18)
  - Weight decreased [Unknown]
  - Dizziness [Recovered/Resolved]
  - Skin toxicity [Unknown]
  - Fatigue [Unknown]
  - Ocular discomfort [Recovered/Resolved]
  - Diarrhoea [Unknown]
  - Stomatitis [Unknown]
  - Pre-existing condition improved [Unknown]
  - Rash papular [Not Recovered/Not Resolved]
  - Central nervous system lesion [Unknown]
  - Brain oedema [Unknown]
  - Leukopenia [Recovering/Resolving]
  - Neutropenia [Recovering/Resolving]
  - Paronychia [Not Recovered/Not Resolved]
  - Haematotoxicity [Unknown]
  - Malignant neoplasm progression [Unknown]
  - Rash [Unknown]
  - Leukopenia [Unknown]

NARRATIVE: CASE EVENT DATE: 201606
